FAERS Safety Report 11076696 (Version 1)
Quarter: 2015Q2

REPORT INFORMATION
  Report Type: Spontaneous
  Country: US (occurrence: US)
  Receive Date: 20150429
  Receipt Date: 20150429
  Transmission Date: 20150821
  Serious: Yes (Other)
  Sender: FDA-Public Use
  Company Number: US-SA-2015SA054040

PATIENT
  Age: 61 Year
  Sex: Female

DRUGS (1)
  1. ALLEGRA [Suspect]
     Active Substance: FEXOFENADINE HYDROCHLORIDE
     Indication: MULTIPLE ALLERGIES
     Dosage: PRODUCT STARTED 3 DAYS AGO.
     Route: 048
     Dates: start: 201504

REACTIONS (3)
  - Salivary hypersecretion [Unknown]
  - Drooling [Unknown]
  - Choking [Unknown]

NARRATIVE: CASE EVENT DATE: 201504
